FAERS Safety Report 23078258 (Version 1)
Quarter: 2023Q4

REPORT INFORMATION
  Report Type: Spontaneous
  Country: GB (occurrence: GB)
  Receive Date: 20231018
  Receipt Date: 20231018
  Transmission Date: 20240109
  Serious: Yes (Other)
  Sender: FDA-Public Use
  Company Number: GB-MHRA-MED-202310011841069390-DJPVZ

PATIENT

DRUGS (2)
  1. ROCURONIUM [Suspect]
     Active Substance: ROCURONIUM BROMIDE
     Indication: Product used for unknown indication
     Dosage: UNKNOWN
     Route: 065
  2. CHLORHEXIDINE [Concomitant]
     Active Substance: CHLORHEXIDINE\CHLORHEXIDINE GLUCONATE
     Indication: Anaesthesia
     Dosage: UNKNOWN
     Route: 065
     Dates: start: 20230921

REACTIONS (4)
  - Rash erythematous [Recovered/Resolved]
  - Hypotension [Unknown]
  - Tachycardia [Unknown]
  - Ventricular extrasystoles [Unknown]

NARRATIVE: CASE EVENT DATE: 20230921
